FAERS Safety Report 18056573 (Version 1)
Quarter: 2020Q3

REPORT INFORMATION
  Report Type: Spontaneous
  Country: NL (occurrence: NL)
  Receive Date: 20200722
  Receipt Date: 20200722
  Transmission Date: 20201103
  Serious: Yes (Other)
  Sender: FDA-Public Use
  Company Number: NL-SUN PHARMACEUTICAL INDUSTRIES LTD-2020R1-253778

PATIENT
  Age: 1 Month
  Sex: Female

DRUGS (2)
  1. SODIUM NITROPRUSSSIDE [Suspect]
     Active Substance: SODIUM NITROPRUSSIDE
     Dosage: 0.5 UG/KG/MIN
     Route: 065
  2. SODIUM NITROPRUSSSIDE [Suspect]
     Active Substance: SODIUM NITROPRUSSIDE
     Indication: BLOOD PRESSURE INCREASED
     Dosage: 0.5 UG/KG/MIN
     Route: 065

REACTIONS (7)
  - Tachypnoea [Unknown]
  - Lactic acidosis [Recovered/Resolved]
  - Dyspnoea [Unknown]
  - Agitation [Unknown]
  - Poisoning [Unknown]
  - Tachycardia [Unknown]
  - Abdominal distension [Unknown]
